FAERS Safety Report 7715862-X (Version None)
Quarter: 2011Q3

REPORT INFORMATION
  Report Type: 
  Country: None (occurrence: None)
  Receive Date: 20110829
  Receipt Date: 20110829
  Transmission Date: 20111222
  Serious: Yes (Other)
  Sender: FDA-Public Use
  Company Number: None

PATIENT
  Age: 30 Year
  Sex: Male
  Weight: 77.11 kg

DRUGS (2)
  1. PAXIL [Concomitant]
  2. EFFEXOR [Suspect]

REACTIONS (7)
  - FEELING ABNORMAL [None]
  - MEMORY IMPAIRMENT [None]
  - ADRENAL DISORDER [None]
  - DEPRESSION [None]
  - ANXIETY [None]
  - ASTHENIA [None]
  - THYROID DISORDER [None]
